FAERS Safety Report 8900660 (Version 2)
Quarter: 2012Q4

REPORT INFORMATION
  Report Type: 
  Country: CO (occurrence: CO)
  Receive Date: 20121109
  Receipt Date: 20121214
  Transmission Date: 20130627
  Serious: Yes (Other)
  Sender: FDA-Public Use
  Company Number: CO-MERCK-1211COL001944

PATIENT
  Age: 53 Year
  Sex: Male

DRUGS (4)
  1. VICTRELIS [Suspect]
     Dosage: 2400 mg, qd
     Dates: start: 20120928, end: 2012
  2. PEG-INTRON [Suspect]
     Dosage: UNK
     Dates: start: 20120831, end: 2012
  3. RIBAVIRIN [Suspect]
     Dosage: 1200 mg, qd
     Dates: start: 20120831, end: 2012
  4. RIBAVIRIN [Suspect]
     Dosage: 800 mg, UNK

REACTIONS (2)
  - Pancytopenia [Unknown]
  - Viral load [Unknown]
